FAERS Safety Report 5368495-7 (Version None)
Quarter: 2007Q2

REPORT INFORMATION
  Report Type: 
  Country: None (occurrence: None)
  Receive Date: 20070620
  Receipt Date: 20070606
  Transmission Date: 20071010
  Serious: Yes (Hospitalization, Other)
  Sender: FDA-Public Use
  Company Number: 2007JP002625

PATIENT
  Age: 84 Year
  Sex: Female

DRUGS (5)
  1. VESICARE [Suspect]
     Indication: HYPERTONIC BLADDER
     Dosage: 10 MG, /D, ORAL
     Route: 048
     Dates: end: 20070523
  2. GASTER(FAMOTIDINE) FORMULATION UNKNOWN [Suspect]
  3. LIPITOR [Suspect]
     Dosage: ORAL
     Route: 048
  4. HALCION (TRIAZOLAM) PER ORAL NOS [Concomitant]
  5. NORVASC [Concomitant]

REACTIONS (2)
  - PYREXIA [None]
  - URINARY RETENTION [None]
